FAERS Safety Report 10098116 (Version 3)
Quarter: 2014Q2

REPORT INFORMATION
  Report Type: Spontaneous
  Country: US (occurrence: US)
  Receive Date: 20140423
  Receipt Date: 20140512
  Transmission Date: 20141212
  Serious: No
  Sender: FDA-Public Use
  Company Number: US-ROXANE LABORATORIES, INC.-2014-RO-00608RO

PATIENT
  Age: 62 Year
  Sex: Male

DRUGS (1)
  1. METHADONE [Suspect]
     Indication: PAIN
     Dosage: 40 MG
     Route: 048
     Dates: start: 201404

REACTIONS (2)
  - Drug ineffective [Not Recovered/Not Resolved]
  - Product quality issue [Unknown]
